FAERS Safety Report 24426045 (Version 1)
Quarter: 2024Q4

REPORT INFORMATION
  Report Type: Spontaneous
  Country: US (occurrence: US)
  Receive Date: 20241011
  Receipt Date: 20241011
  Transmission Date: 20250114
  Serious: No
  Sender: APOTEX
  Company Number: US-APOTEX-2024AP011766

PATIENT
  Age: 44 Year
  Sex: Male

DRUGS (2)
  1. MEMANTINE [Suspect]
     Active Substance: MEMANTINE
     Indication: Neuralgia
     Dosage: 5 MILLIGRAM, QD
     Route: 065
  2. MEMANTINE [Suspect]
     Active Substance: MEMANTINE
     Dosage: 2.5 MILLIGRAM, QD
     Route: 065

REACTIONS (1)
  - Sedation [Recovered/Resolved]
